FAERS Safety Report 8486617 (Version 2)
Quarter: 2012Q4

REPORT INFORMATION
  Report Type: 
  Country: IT (occurrence: IT)
  Receive Date: 20120402
  Receipt Date: 20121019
  Transmission Date: 20130627
  Serious: Yes (Hospitalization)
  Sender: FDA-Public Use
  Company Number: PHHY2012IT026799

PATIENT
  Age: 53 Year
  Sex: Female

DRUGS (3)
  1. VOLTAREN [Suspect]
     Dosage: 75 mg, UNK
     Route: 030
     Dates: start: 20111009, end: 20111009
  2. CAPOTEN [Concomitant]
     Dosage: 25 mg, UNK
     Route: 048
     Dates: start: 20060428, end: 20111009
  3. DAPAROX (PAROXETINE MESILATE) [Concomitant]
     Dosage: 20 mg, UNK
     Dates: start: 20091020, end: 20111009

REACTIONS (5)
  - Dysphagia [Not Recovered/Not Resolved]
  - Cough [Not Recovered/Not Resolved]
  - Palatal oedema [Not Recovered/Not Resolved]
  - Reflux laryngitis [Not Recovered/Not Resolved]
  - Hypertension [Not Recovered/Not Resolved]
